FAERS Safety Report 9530725 (Version 1)
Quarter: 2013Q3

REPORT INFORMATION
  Report Type: Spontaneous
  Country: US (occurrence: None)
  Receive Date: 20130916
  Receipt Date: 20130916
  Transmission Date: 20140515
  Serious: Yes (Other)
  Sender: FDA-Public Use
  Company Number: None

PATIENT
  Age: 16 Year
  Sex: Male
  Weight: 108.86 kg

DRUGS (2)
  1. XYNTHA [Suspect]
     Indication: FACTOR VIII DEFICIENCY
     Dosage: PM
     Route: 042
     Dates: start: 20130820, end: 20130821
  2. XYNTHA [Suspect]
     Dosage: PM
     Route: 042
     Dates: start: 20130820, end: 20130821

REACTIONS (3)
  - Anxiety [None]
  - Pyrexia [None]
  - Infusion related reaction [None]
